FAERS Safety Report 10984658 (Version 2)
Quarter: 2015Q2

REPORT INFORMATION
  Report Type: Spontaneous
  Country: US (occurrence: US)
  Receive Date: 20150403
  Receipt Date: 20150525
  Transmission Date: 20150821
  Serious: No
  Sender: FDA-Public Use
  Company Number: US-JNJFOC-20130906805

PATIENT
  Age: 46 Year
  Sex: Female
  Weight: 77.11 kg

DRUGS (3)
  1. PROPRANOLOL [Concomitant]
     Active Substance: PROPRANOLOL\PROPRANOLOL HYDROCHLORIDE
     Indication: CARDIAC DISORDER
     Dosage: FOR 20 YEARS
     Route: 065
     Dates: start: 1993
  2. IMODIUM A-D [Suspect]
     Active Substance: LOPERAMIDE HYDROCHLORIDE
     Route: 048
  3. IMODIUM A-D [Suspect]
     Active Substance: LOPERAMIDE HYDROCHLORIDE
     Indication: DIARRHOEA
     Dosage: 30 ML, AS NEEDED
     Route: 048
     Dates: start: 20130801, end: 20130906

REACTIONS (2)
  - Product taste abnormal [Unknown]
  - Drug ineffective [Unknown]
